FAERS Safety Report 19453271 (Version 5)
Quarter: 2024Q2

REPORT INFORMATION
  Report Type: Spontaneous
  Country: US (occurrence: US)
  Receive Date: 20210623
  Receipt Date: 20240606
  Transmission Date: 20240715
  Serious: No
  Sender: FDA-Public Use
  Company Number: US-PFIZER INC-2021750818

PATIENT
  Age: 79 Year
  Sex: Female

DRUGS (11)
  1. XELJANZ XR [Suspect]
     Active Substance: TOFACITINIB CITRATE
     Dosage: 11 MG, DAILY
  2. AMLODIPINE [Concomitant]
     Active Substance: AMLODIPINE BESYLATE
  3. ASPIRIN [Concomitant]
     Active Substance: ASPIRIN
  4. FAMOTIDINE [Concomitant]
     Active Substance: FAMOTIDINE
  5. FERROUS SULFATE [Concomitant]
     Active Substance: FERROUS SULFATE
  6. LEVOTHYROXINE [Concomitant]
     Active Substance: LEVOTHYROXINE\LEVOTHYROXINE SODIUM
  7. MYCOPHENOLIC ACID [Concomitant]
     Active Substance: MYCOPHENOLIC ACID
  8. PANTOPRAZOLE [Concomitant]
     Active Substance: PANTOPRAZOLE
  9. PROLIA [Concomitant]
     Active Substance: DENOSUMAB
  10. ROSUVASTATIN [Concomitant]
     Active Substance: ROSUVASTATIN
  11. SOLIFENACIN [Concomitant]
     Active Substance: SOLIFENACIN

REACTIONS (7)
  - Pain [Not Recovered/Not Resolved]
  - Osteoporosis [Unknown]
  - Dyspnoea [Unknown]
  - Stress [Unknown]
  - Dizziness [Unknown]
  - Drug hypersensitivity [Unknown]
  - Sneezing [Unknown]

NARRATIVE: CASE EVENT DATE: 20240301
